FAERS Safety Report 7742992-9 (Version None)
Quarter: 2011Q3

REPORT INFORMATION
  Report Type: 
  Country: None (occurrence: None)
  Receive Date: 20110912
  Receipt Date: 20110831
  Transmission Date: 20111222
  Serious: Yes (Other)
  Sender: FDA-Public Use
  Company Number: US-BAYER-2011-009640

PATIENT
  Age: 48 Year
  Sex: Female
  Weight: 68.027 kg

DRUGS (5)
  1. YASMIN [Suspect]
     Indication: MENSTRUAL CYCLE MANAGEMENT
     Dosage: UNK
     Dates: start: 20070201, end: 20090501
  2. YAZ [Suspect]
     Indication: MENSTRUAL CYCLE MANAGEMENT
  3. YAZ [Suspect]
     Indication: ACNE
     Dosage: UNK
     Dates: start: 20070201, end: 20090501
  4. COUMADIN [Concomitant]
     Dosage: UNK
     Dates: start: 20090501, end: 20090701
  5. APPETITE SUPPRESSANTS NOS (OVER THE COUNTER) [Concomitant]

REACTIONS (3)
  - SCOTOMA [None]
  - PAIN [None]
  - RETINAL ARTERY OCCLUSION [None]
